FAERS Safety Report 8991251 (Version 1)
Quarter: 2012Q4

REPORT INFORMATION
  Report Type: Report from Study
  Country: CA (occurrence: CA)
  Receive Date: 20121231
  Receipt Date: 20121231
  Transmission Date: 20130627
  Serious: Yes (Other)
  Sender: FDA-Public Use
  Company Number: CA-ROCHE-1166762

PATIENT
  Sex: Female

DRUGS (1)
  1. OMALIZUMAB [Suspect]
     Indication: PRODUCT USED FOR UNKNOWN INDICATION
     Route: 065
     Dates: start: 20070329

REACTIONS (17)
  - Seasonal allergy [Unknown]
  - Chest discomfort [Unknown]
  - Oropharyngeal pain [Unknown]
  - Hypersensitivity [Unknown]
  - Dyspnoea exertional [Unknown]
  - Productive cough [Unknown]
  - Nasopharyngitis [Unknown]
  - Nasal congestion [Unknown]
  - Streptococcal infection [Unknown]
  - Malaise [Unknown]
  - Abdominal pain [Unknown]
  - Lacrimation increased [Unknown]
  - Nausea [Unknown]
  - Injection site pruritus [Unknown]
  - Injection site erythema [Unknown]
  - Headache [Unknown]
  - Fatigue [Unknown]
